FAERS Safety Report 7390935-2 (Version None)
Quarter: 2011Q2

REPORT INFORMATION
  Report Type: 
  Country: None (occurrence: None)
  Receive Date: 20110404
  Receipt Date: 20110321
  Transmission Date: 20111010
  Serious: Yes (Death)
  Sender: FDA-Public Use
  Company Number: BE-CELGENEUS-013-21880-11021809

PATIENT
  Sex: Male

DRUGS (4)
  1. AUGMENTIN [Concomitant]
     Indication: INFECTION
     Route: 051
     Dates: start: 20101201
  2. REVLIMID [Suspect]
     Indication: MYELOFIBROSIS
     Dosage: 5 MILLIGRAM
     Route: 048
     Dates: start: 20100601
  3. REVLIMID [Suspect]
     Dosage: 10 MILLIGRAM
     Route: 048
     Dates: end: 20101201
  4. HYDROXYUREA [Concomitant]
     Indication: SPLENOMEGALY
     Route: 065

REACTIONS (2)
  - SPLENIC INFARCTION [None]
  - SEPSIS [None]
